FAERS Safety Report 24132315 (Version 1)
Quarter: 2024Q3

REPORT INFORMATION
  Report Type: Spontaneous
  Country: ES (occurrence: ES)
  Receive Date: 20240724
  Receipt Date: 20240724
  Transmission Date: 20241017
  Serious: Yes (Life-Threatening, Hospitalization, Other)
  Sender: SANOFI AVENTIS
  Company Number: ES-SA-SAC20240610000298

PATIENT
  Age: 74 Year
  Sex: Female
  Weight: 66 kg

DRUGS (1)
  1. THYMOGLOBULIN [Suspect]
     Active Substance: LAPINE T-LYMPHOCYTE IMMUNE GLOBULIN
     Indication: Prophylaxis against transplant rejection
     Dosage: 75 MG
     Route: 042
     Dates: start: 20240211

REACTIONS (6)
  - Pulmonary oedema [Unknown]
  - Cough [Unknown]
  - Dyspnoea [Unknown]
  - Tachycardia [Unknown]
  - Tachypnoea [Unknown]
  - Nasal discomfort [Unknown]

NARRATIVE: CASE EVENT DATE: 20240101
